FAERS Safety Report 4352585-1 (Version None)
Quarter: 2004Q2

REPORT INFORMATION
  Report Type: 
  Country: None (occurrence: None)
  Receive Date: 20040504
  Receipt Date: 20040423
  Transmission Date: 20050107
  Serious: Yes (Hospitalization)
  Sender: FDA-Public Use
  Company Number: NL-JNJFOC-20040303171

PATIENT
  Age: 74 Year
  Sex: Male

DRUGS (14)
  1. CORDIUM [Suspect]
     Indication: DRUG USE FOR UNKNOWN INDICATION
     Route: 049
  2. ACETYLSALICYLATE LYSINE [Suspect]
     Indication: DRUG USE FOR UNKNOWN INDICATION
  3. ZOLPIDEM [Suspect]
     Indication: DRUG USE FOR UNKNOWN INDICATION
  4. BRONCHODUAL [Suspect]
  5. BRONCHODUAL [Suspect]
     Indication: DRUG USE FOR UNKNOWN INDICATION
  6. GLYCERYL TRINITRATE [Suspect]
     Indication: DRUG USE FOR UNKNOWN INDICATION
  7. TAMSULOSIN HYDROCHLORIDE [Suspect]
     Indication: DRUG USE FOR UNKNOWN INDICATION
  8. SERETIDE [Concomitant]
  9. SERETIDE [Concomitant]
  10. NICERGOLINE [Concomitant]
  11. ADRAFINIL [Concomitant]
  12. ACETYLCYSTEINE [Concomitant]
  13. FENSPIRIDE HYDROCHLORIDE [Concomitant]
  14. NIMESULIDE [Concomitant]

REACTIONS (2)
  - THROMBOCYTOPENIA [None]
  - THROMBOCYTOPENIC PURPURA [None]
